FAERS Safety Report 25729202 (Version 3)
Quarter: 2025Q4

REPORT INFORMATION
  Report Type: Spontaneous
  Country: JP (occurrence: JP)
  Receive Date: 20250827
  Receipt Date: 20251124
  Transmission Date: 20260118
  Serious: Yes (Other)
  Sender: BRISTOL-MYERS SQUIBB COMPANY
  Company Number: JP-ONO-2025JP014827

PATIENT
  Age: 64 Year
  Sex: Male

DRUGS (1)
  1. OPDIVO [Suspect]
     Active Substance: NIVOLUMAB
     Indication: Oesophageal carcinoma
     Route: 041

REACTIONS (7)
  - Pneumonia [Recovering/Resolving]
  - Suture related complication [Unknown]
  - Infectious pleural effusion [Unknown]
  - Mediastinitis [Unknown]
  - Immune-mediated adrenal insufficiency [Unknown]
  - Pancreatic leak [Unknown]
  - Pulmonary fistula [Unknown]

NARRATIVE: CASE EVENT DATE: 20240101
